FAERS Safety Report 20250944 (Version 1)
Quarter: 2021Q4

REPORT INFORMATION
  Report Type: Spontaneous
  Country: US (occurrence: US)
  Receive Date: 20211229
  Receipt Date: 20211229
  Transmission Date: 20220304
  Serious: No
  Sender: FDA-Public Use
  Company Number: US-CLOVIS ONCOLOGY-CLO-2021-001486

PATIENT
  Age: 80 Year
  Sex: Female

DRUGS (2)
  1. RUBRACA [Suspect]
     Active Substance: RUCAPARIB CAMSYLATE
     Indication: Ovarian cancer
     Dosage: 600 MILLIGRAM, BID
     Route: 048
     Dates: start: 20210918, end: 20210925
  2. RUBRACA [Suspect]
     Active Substance: RUCAPARIB CAMSYLATE
     Dosage: 200 MILLIGRAM, BID
     Route: 048
     Dates: start: 2021, end: 202111

REACTIONS (8)
  - Nervousness [Recovering/Resolving]
  - Dysphonia [Recovering/Resolving]
  - Gastrointestinal pain [Recovering/Resolving]
  - Hypophagia [Recovered/Resolved]
  - Asthenia [Recovering/Resolving]
  - Dizziness [Recovering/Resolving]
  - Nausea [Recovering/Resolving]
  - Drug ineffective [Unknown]

NARRATIVE: CASE EVENT DATE: 20210901
